FAERS Safety Report 8470200-2 (Version None)
Quarter: 2012Q2

REPORT INFORMATION
  Report Type: 
  Country: None (occurrence: None)
  Receive Date: 20120621
  Receipt Date: 20120621
  Transmission Date: 20120825
  Serious: No
  Sender: FDA-Public Use
  Company Number: None

PATIENT
  Age: 35 Year
  Sex: Female
  Weight: 80.2867 kg

DRUGS (1)
  1. LEVOFLOXACIN [Suspect]
     Indication: SINUSITIS
     Dates: start: 20120607, end: 20120612

REACTIONS (9)
  - TENDONITIS [None]
  - JOINT CREPITATION [None]
  - POISONING [None]
  - NAUSEA [None]
  - BACK PAIN [None]
  - NEUROPATHY PERIPHERAL [None]
  - DIZZINESS [None]
  - INSOMNIA [None]
  - ARTHRALGIA [None]
